FAERS Safety Report 16257073 (Version 1)
Quarter: 2019Q2

REPORT INFORMATION
  Report Type: Spontaneous
  Country: FR (occurrence: FR)
  Receive Date: 20190430
  Receipt Date: 20190430
  Transmission Date: 20190711
  Serious: Yes (Disabling)
  Sender: FDA-Public Use
  Company Number: PHHY2019FR095133

PATIENT
  Age: 37 Year
  Sex: Male
  Weight: 98 kg

DRUGS (2)
  1. SIMPONI [Suspect]
     Active Substance: GOLIMUMAB
     Indication: PSORIATIC ARTHROPATHY
     Dosage: 100 MG, QMO
     Route: 058
     Dates: start: 2015, end: 201809
  2. COSENTYX [Suspect]
     Active Substance: SECUKINUMAB
     Indication: PSORIATIC ARTHROPATHY
     Dosage: 300 MG, QW
     Route: 058
     Dates: start: 20180707, end: 20180804

REACTIONS (7)
  - Deafness unilateral [Not Recovered/Not Resolved]
  - Otitis media chronic [Not Recovered/Not Resolved]
  - Pachymeningitis [Recovered/Resolved]
  - Oral candidiasis [Recovered/Resolved]
  - Labyrinthitis [Not Recovered/Not Resolved]
  - Facial paralysis [Recovered/Resolved]
  - Vertigo [Not Recovered/Not Resolved]

NARRATIVE: CASE EVENT DATE: 20180715
